FAERS Safety Report 8519496-9 (Version None)
Quarter: 2012Q3

REPORT INFORMATION
  Report Type: 
  Country: None (occurrence: None)
  Receive Date: 20120718
  Receipt Date: 20120710
  Transmission Date: 20120928
  Serious: Yes (Life-Threatening, Other)
  Sender: FDA-Public Use
  Company Number: PL-PFIZER INC-2012163913

PATIENT
  Age: 82 Year
  Sex: Female

DRUGS (1)
  1. CORDARONE [Suspect]
     Indication: ATRIAL FIBRILLATION
     Dosage: 750 MG, DAILY
     Route: 042
     Dates: start: 20120630, end: 20120630

REACTIONS (5)
  - CARDIAC ARREST [None]
  - PULSE ABSENT [None]
  - APNOEA [None]
  - BLOOD PRESSURE DECREASED [None]
  - BRADYCARDIA [None]
